FAERS Safety Report 16011134 (Version 1)
Quarter: 2019Q1

REPORT INFORMATION
  Report Type: Other
  Country: DE (occurrence: DE)
  Receive Date: 20190227
  Receipt Date: 20190227
  Transmission Date: 20190418
  Serious: Yes (Death, Other)
  Sender: FDA-Public Use
  Company Number: DE-EMCURE PHARMACEUTICALS LTD-2019-EPL-0096

PATIENT

DRUGS (6)
  1. BICNU [Suspect]
     Active Substance: CARMUSTINE
     Indication: PLASMA CELL MYELOMA
     Dosage: ON DAY 2 OF EVERY CYCLE
  2. DEXAMETHASONE. [Suspect]
     Active Substance: DEXAMETHASONE
     Indication: PLASMA CELL MYELOMA
     Dosage: DOSING 3X8 (MG ABS.), DAYS 1-10 OF EVERY CYCLE
  3. ETOPOSIDE. [Suspect]
     Active Substance: ETOPOSIDE
     Indication: PLASMA CELL MYELOMA
     Dosage: ON DAYS 4-7 EVERY CYCLE (1 D)
  4. MELPHALAN. [Suspect]
     Active Substance: MELPHALAN
     Indication: PLASMA CELL MYELOMA
     Dosage: ON DAY 3 OF EVERY CYCLE
  5. GRANULOCYTE COLONY STIMULATING FACTOR [Concomitant]
     Active Substance: GRANULOCYTE COLONY-STIMULATING FACTOR NOS
     Dosage: ON DAY 8 OF EACH CYCLE (1 CYCLICAL)
  6. CYTARABINE. [Suspect]
     Active Substance: CYTARABINE
     Indication: PLASMA CELL MYELOMA
     Dosage: ON DAYS 4-7

REACTIONS (7)
  - Multiple organ dysfunction syndrome [Fatal]
  - Intestinal perforation [Fatal]
  - Neutropenia [Unknown]
  - Thrombocytopenia [Unknown]
  - Toxicity to various agents [Fatal]
  - Sepsis [Fatal]
  - Product use in unapproved indication [Unknown]
